FAERS Safety Report 21009316 (Version 1)
Quarter: 2022Q2

REPORT INFORMATION
  Report Type: Spontaneous
  Country: US (occurrence: US)
  Receive Date: 20220627
  Receipt Date: 20220627
  Transmission Date: 20220721
  Serious: No
  Sender: FDA-Public Use
  Company Number: US-PHARMING-PHAUS2022000409

PATIENT

DRUGS (2)
  1. RUCONEST [Suspect]
     Active Substance: HUMAN C1-ESTERASE INHIBITOR
     Indication: Hereditary angioedema
     Dosage: 3175 IU, AS NEEDED
     Route: 042
     Dates: start: 20211111
  2. RUCONEST [Suspect]
     Active Substance: HUMAN C1-ESTERASE INHIBITOR
     Dosage: 3175 IU, AS NEEDED
     Route: 042
     Dates: start: 20211111

REACTIONS (1)
  - Urticaria [Unknown]
